FAERS Safety Report 5157019-5 (Version None)
Quarter: 2006Q4

REPORT INFORMATION
  Report Type: 
  Country: None (occurrence: None)
  Receive Date: 20061127
  Receipt Date: 20061012
  Transmission Date: 20070319
  Serious: Yes (Other)
  Sender: FDA-Public Use
  Company Number: US-JNJFOC-20061003307

PATIENT
  Sex: Female
  Weight: 52.62 kg

DRUGS (8)
  1. DURAGESIC-100 [Suspect]
     Indication: BACK PAIN
     Route: 062
  2. NOVOCAIN [Interacting]
     Indication: DENTAL TREATMENT
     Route: 065
  3. DEXTROSTAT [Concomitant]
     Indication: ATTENTION DEFICIT/HYPERACTIVITY DISORDER
     Route: 065
  4. SOMA [Concomitant]
     Indication: BACK PAIN
     Route: 065
  5. NEURONTIN [Concomitant]
     Indication: BACK PAIN
     Route: 048
  6. KLONAPIN [Concomitant]
     Indication: PANIC DISORDER
     Route: 048
  7. WELLBUTRIN XL [Concomitant]
     Indication: DEPRESSION
     Route: 065
  8. SEROQUEL [Concomitant]
     Indication: DEPRESSION
     Route: 048

REACTIONS (5)
  - CHILLS [None]
  - DIARRHOEA [None]
  - DRUG INTERACTION [None]
  - HYPERHIDROSIS [None]
  - TACHYCARDIA [None]
